FAERS Safety Report 14752397 (Version 1)
Quarter: 2018Q2

REPORT INFORMATION
  Report Type: Other
  Country: ES (occurrence: ES)
  Receive Date: 20180412
  Receipt Date: 20180412
  Transmission Date: 20180711
  Serious: Yes (Death)
  Sender: FDA-Public Use
  Company Number: ES-GLENMARK PHARMACEUTICALS-2018GMK034182

PATIENT

DRUGS (4)
  1. HYDROCORTISONE. [Concomitant]
     Active Substance: HYDROCORTISONE
     Indication: HYPERADRENALISM
     Dosage: 10 MG, QD
     Route: 048
     Dates: start: 20180227, end: 20180302
  2. CITALOPRAM HYDROBROMIDE. [Suspect]
     Active Substance: CITALOPRAM HYDROBROMIDE
     Indication: DEPRESSION
     Dosage: 20 MG, QD
     Route: 048
     Dates: start: 20170626, end: 20180227
  3. TRAZODONA [Interacting]
     Active Substance: TRAZODONE HYDROCHLORIDE
     Indication: DEPRESSION
     Dosage: 100 MG, QD
     Route: 048
     Dates: start: 20170807, end: 20180227
  4. DEXAMETASONA                       /00016001/ [Interacting]
     Active Substance: DEXAMETHASONE
     Indication: HYPERADRENALISM
     Dosage: 0.25 MG, QD
     Route: 048
     Dates: start: 2016, end: 20180227

REACTIONS (1)
  - Cushing^s syndrome [Fatal]

NARRATIVE: CASE EVENT DATE: 20180227
